FAERS Safety Report 5763907-9 (Version None)
Quarter: 2008Q2

REPORT INFORMATION
  Report Type: 
  Country: None (occurrence: None)
  Receive Date: 20080606
  Receipt Date: 20080606
  Transmission Date: 20081010
  Serious: No
  Sender: FDA-Public Use
  Company Number: None

PATIENT
  Age: 48 Year
  Sex: Female
  Weight: 70.3075 kg

DRUGS (1)
  1. CHANTIX [Suspect]
     Indication: EX-SMOKER
     Dosage: TWICE A DAY CUTANEOUS
     Route: 003

REACTIONS (4)
  - ABNORMAL DREAMS [None]
  - DEPRESSION [None]
  - EMOTIONAL DISORDER [None]
  - THINKING ABNORMAL [None]
